FAERS Safety Report 9868931 (Version 1)
Quarter: 2014Q1

REPORT INFORMATION
  Report Type: Report from Study
  Country: NL (occurrence: NL)
  Receive Date: 20140204
  Receipt Date: 20140204
  Transmission Date: 20141002
  Serious: Yes (Hospitalization)
  Sender: FDA-Public Use
  Company Number: PHHY2013NL155272

PATIENT
  Age: 61 Year
  Sex: Male

DRUGS (4)
  1. ZOMETA [Suspect]
     Indication: PLASMA CELL MYELOMA
     Dosage: 4 MG/100ML, ONCE EVERY 4 WEEKS
     Route: 042
  2. ZOMETA [Suspect]
     Dosage: 4 MG/100ML, ONCE EVERY 4 WEEKS
     Route: 042
     Dates: start: 20130308
  3. ZOMETA [Suspect]
     Dosage: 4 MG/100ML, ONCE EVERY 4 WEEKS
     Route: 042
     Dates: start: 20131125
  4. ZOMETA [Suspect]
     Dosage: 4 MG/100ML, ONCE EVERY 4 WEEKS
     Route: 042
     Dates: start: 20131223

REACTIONS (2)
  - Bone marrow disorder [Unknown]
  - Hyperproteinaemia [Unknown]
